FAERS Safety Report 9379668 (Version 1)
Quarter: 2013Q2

REPORT INFORMATION
  Report Type: Spontaneous
  Country: CH (occurrence: None)
  Receive Date: 20130627
  Receipt Date: 20130627
  Transmission Date: 20140414
  Serious: Yes (Life-Threatening)
  Sender: FDA-Public Use
  Company Number: 1766921

PATIENT
  Age: 68 Year
  Sex: Male
  Weight: 75 kg

DRUGS (9)
  1. DEXMEDETOMIDINE HYDROCHLORIDE [Suspect]
     Indication: SEDATION
     Route: 041
     Dates: start: 20130516, end: 20130516
  2. HEPARIN [Concomitant]
  3. ESOMEPRAZOLE [Concomitant]
  4. METOCLOPRAMIDE [Concomitant]
  5. MACROGOL [Concomitant]
  6. METAMIZOLE [Concomitant]
  7. MEROPENEM [Concomitant]
  8. VANCOMYCIN [Concomitant]
  9. FLUCONAZOL [Concomitant]

REACTIONS (3)
  - Cardiac arrest [None]
  - Hypophosphataemia [None]
  - Hypercalcaemia [None]
